FAERS Safety Report 16883497 (Version 1)
Quarter: 2019Q4

REPORT INFORMATION
  Report Type: Spontaneous
  Country: ES (occurrence: ES)
  Receive Date: 20191004
  Receipt Date: 20191004
  Transmission Date: 20200122
  Serious: Yes (Other)
  Sender: FDA-Public Use
  Company Number: ES-TEVA-2019-ES-1117007

PATIENT
  Age: 31 Year
  Sex: Male

DRUGS (1)
  1. AMOXICILINA/?CIDO CLAVUL?NICO 875 MG/125 MG 30 COMPRIMIDOS [Suspect]
     Active Substance: AMOXICILLIN\CLAVULANIC ACID
     Indication: PHARYNGITIS
     Dosage: 1 DF PER 8 HOURS
     Route: 048
     Dates: start: 20190910, end: 20190911

REACTIONS (1)
  - Palatal oedema [Recovered/Resolved]

NARRATIVE: CASE EVENT DATE: 20190911
